FAERS Safety Report 10168895 (Version 1)
Quarter: 2014Q2

REPORT INFORMATION
  Report Type: Spontaneous
  Country: US (occurrence: None)
  Receive Date: 20140509
  Receipt Date: 20140509
  Transmission Date: 20141212
  Serious: Yes (Life-Threatening, Hospitalization, Other)
  Sender: FDA-Public Use
  Company Number: UTC-043610

PATIENT
  Age: 45 Year
  Sex: Female
  Weight: 67.13 kg

DRUGS (2)
  1. REMODULIN [Suspect]
     Indication: PULMONARY ARTERIAL HYPERTENSION
     Dosage: 25.92 UG/KG (0.018 UG/KG, 1 IN 1 MIN), INTRAVENOUS DRIP
     Route: 041
     Dates: start: 201312
  2. SILDENAFIL (SILDENAFIL) [Concomitant]

REACTIONS (7)
  - Unresponsive to stimuli [None]
  - Pleural effusion [None]
  - Retroperitoneal haemorrhage [None]
  - Blood creatine phosphokinase increased [None]
  - Pyrexia [None]
  - Atrioventricular block second degree [None]
  - Ventricular arrhythmia [None]
